FAERS Safety Report 26140846 (Version 2)
Quarter: 2025Q4

REPORT INFORMATION
  Report Type: Spontaneous
  Country: CN (occurrence: CN)
  Receive Date: 20251210
  Receipt Date: 20251218
  Transmission Date: 20260118
  Serious: Yes (Other)
  Sender: PFIZER
  Company Number: CN-PFIZER INC-202500237871

PATIENT
  Age: 46 Year
  Sex: Male

DRUGS (11)
  1. METHYLPREDNISOLONE [Suspect]
     Active Substance: METHYLPREDNISOLONE
     Indication: Mesangioproliferative glomerulonephritis
     Dosage: 40 MG, 1X/DAY
     Dates: start: 20231226
  2. METHYLPREDNISOLONE [Suspect]
     Active Substance: METHYLPREDNISOLONE
     Dosage: 20 MG, DAILY
     Dates: start: 202407
  3. METHYLPREDNISOLONE [Suspect]
     Active Substance: METHYLPREDNISOLONE
     Dosage: 4 MG (TAPERING THE DOSE TO 4 MG)
     Dates: end: 20241223
  4. PREDNISONE [Concomitant]
     Active Substance: PREDNISONE
     Indication: Mesangioproliferative glomerulonephritis
     Dosage: 25 MG, 1X/DAY
     Dates: start: 20221018
  5. PREDNISONE [Concomitant]
     Active Substance: PREDNISONE
     Dosage: 5 MG (TAPERING THE DOSE TO 5 MG)
     Dates: end: 20231226
  6. PREDNISONE [Concomitant]
     Active Substance: PREDNISONE
     Dosage: 2.5 MG, 1X/DAY
  7. MYCOPHENOLATE MOFETIL [Concomitant]
     Active Substance: MYCOPHENOLATE MOFETIL
     Indication: Mesangioproliferative glomerulonephritis
     Dosage: 0.5 G, 2X/DAY
  8. TELITACICEPT [Concomitant]
     Active Substance: TELITACICEPT
     Indication: Mesangioproliferative glomerulonephritis
     Dosage: 80 MG, WEEKLY
     Dates: start: 20240725
  9. TELITACICEPT [Concomitant]
     Active Substance: TELITACICEPT
     Dosage: 80 MG, EVERY 2 WEEKS
  10. TELITACICEPT [Concomitant]
     Active Substance: TELITACICEPT
     Dosage: 80 MG, EVERY 3 WEEKS
  11. TELITACICEPT [Concomitant]
     Active Substance: TELITACICEPT
     Dosage: 80 MG, EVERY 4 WEEKS

REACTIONS (2)
  - Steroid diabetes [Unknown]
  - Steroid dependence [Unknown]
